FAERS Safety Report 9259473 (Version 1)
Quarter: 2013Q2

REPORT INFORMATION
  Report Type: Spontaneous
  Country: US (occurrence: US)
  Receive Date: 20130428
  Receipt Date: 20130428
  Transmission Date: 20140414
  Serious: Yes (Death, Other)
  Sender: FDA-Public Use
  Company Number: US-TEVA-400518USA

PATIENT
  Age: 61 Year
  Sex: Female

DRUGS (4)
  1. CARBOPLATIN [Suspect]
     Indication: OVARIAN CANCER RECURRENT
  2. CISPLATIN [Suspect]
     Indication: OVARIAN CANCER RECURRENT
     Route: 042
  3. DOXORUBICIN LIPOSOMAL [Suspect]
     Indication: OVARIAN CANCER RECURRENT
  4. PACLITAXEL [Concomitant]
     Indication: OVARIAN CANCER RECURRENT

REACTIONS (2)
  - Renal failure chronic [Unknown]
  - Ovarian cancer [Fatal]
